FAERS Safety Report 14308262 (Version 8)
Quarter: 2018Q3

REPORT INFORMATION
  Report Type: Spontaneous
  Country: US (occurrence: US)
  Receive Date: 20171220
  Receipt Date: 20180928
  Transmission Date: 20181010
  Serious: Yes (Hospitalization)
  Sender: FDA-Public Use
  Company Number: US-ACTELION-A-US2017-164491

PATIENT
  Age: 58 Year
  Sex: Male
  Weight: 76.19 kg

DRUGS (27)
  1. FENTANYL. [Concomitant]
     Active Substance: FENTANYL
  2. PREDNISONE. [Concomitant]
     Active Substance: PREDNISONE
  3. LORAZEPAM. [Concomitant]
     Active Substance: LORAZEPAM
  4. OXYCODONE [Concomitant]
     Active Substance: OXYCODONE
  5. MYCOPHENOLATE [Concomitant]
     Active Substance: MYCOPHENOLIC ACID
  6. OXYCODONE/APAP [Concomitant]
     Active Substance: ACETAMINOPHEN\OXYCODONE HYDROCHLORIDE
  7. AMLODIPINE [Concomitant]
     Active Substance: AMLODIPINE BESYLATE
  8. NYSTATIN. [Concomitant]
     Active Substance: NYSTATIN
  9. LIDOCAINE. [Concomitant]
     Active Substance: LIDOCAINE
  10. MIDODRINE [Concomitant]
     Active Substance: MIDODRINE
  11. VELETRI [Suspect]
     Active Substance: EPOPROSTENOL
     Indication: PORTOPULMONARY HYPERTENSION
     Dosage: 6.8 NG/KG, PER MIN
     Route: 042
     Dates: end: 201809
  12. OPSUMIT [Suspect]
     Active Substance: MACITENTAN
     Indication: PORTOPULMONARY HYPERTENSION
     Dosage: 10 MG, QD
     Route: 048
     Dates: start: 20161212
  13. SULFAMETHOXAZOL W/TRIMETOPRIM [Concomitant]
     Active Substance: SULFAMETHOXAZOLE\TRIMETHOPRIM
  14. QUETIAPINE. [Concomitant]
     Active Substance: QUETIAPINE
  15. FUROSEMIDE. [Concomitant]
     Active Substance: FUROSEMIDE
  16. OMEPRAZOLE. [Concomitant]
     Active Substance: OMEPRAZOLE
  17. ACYCLOVIR. [Concomitant]
     Active Substance: ACYCLOVIR
  18. LACTULOSE. [Concomitant]
     Active Substance: LACTULOSE
  19. GABAPENTIN. [Concomitant]
     Active Substance: GABAPENTIN
  20. SUCRALFATE. [Concomitant]
     Active Substance: SUCRALFATE
  21. MIRTAZAPINE. [Concomitant]
     Active Substance: MIRTAZAPINE
  22. TACROLIMUS. [Concomitant]
     Active Substance: TACROLIMUS
  23. PROPRANOLOL [Concomitant]
     Active Substance: PROPRANOLOL HYDROCHLORIDE
  24. ASPIRIN. [Concomitant]
     Active Substance: ASPIRIN
  25. AMILORIDE [Concomitant]
     Active Substance: AMILORIDE
  26. CIPROFLOXACIN. [Concomitant]
     Active Substance: CIPROFLOXACIN
  27. XIFAXAN [Concomitant]
     Active Substance: RIFAXIMIN

REACTIONS (7)
  - Chronic hepatic failure [Unknown]
  - Anaemia [Unknown]
  - Liver transplant [Recovering/Resolving]
  - Haemorrhage [Unknown]
  - Generalised oedema [Unknown]
  - Swelling [Unknown]
  - Dyspnoea [Unknown]

NARRATIVE: CASE EVENT DATE: 20171231
